FAERS Safety Report 9968721 (Version 1)
Quarter: 2014Q1

REPORT INFORMATION
  Report Type: Report from Study
  Country: US (occurrence: US)
  Receive Date: 20140306
  Receipt Date: 20140306
  Transmission Date: 20141002
  Serious: No
  Sender: FDA-Public Use
  Company Number: US-ABBVIE-13P-163-1142264-00

PATIENT
  Age: 58 Year
  Sex: Female

DRUGS (7)
  1. HUMIRA [Suspect]
     Indication: COLITIS ULCERATIVE
     Dates: start: 201306
  2. MULTIVITAMIN [Concomitant]
     Indication: PRODUCT USED FOR UNKNOWN INDICATION
     Dosage: DAILY
  3. CALCIUM [Concomitant]
     Indication: PRODUCT USED FOR UNKNOWN INDICATION
     Dosage: DAILY
  4. PREMPRO [Concomitant]
     Indication: MENOPAUSE
     Dosage: 0.45/1.5MG DAILY AT BEDTIME
  5. LEXAPRO [Concomitant]
     Indication: ANXIETY
     Dosage: 10MG DAILY
  6. XANAX [Concomitant]
     Indication: INSOMNIA
     Dosage: BEDTIME
  7. TYLENOL [Concomitant]
     Indication: PRODUCT USED FOR UNKNOWN INDICATION

REACTIONS (1)
  - Sinus headache [Recovering/Resolving]
